FAERS Safety Report 14936651 (Version 2)
Quarter: 2018Q2

REPORT INFORMATION
  Report Type: Report from Study
  Country: EC (occurrence: EC)
  Receive Date: 20180525
  Receipt Date: 20180528
  Transmission Date: 20180711
  Serious: Yes (Hospitalization)
  Sender: FDA-Public Use
  Company Number: EC-ROCHE-2119750

PATIENT
  Sex: Female

DRUGS (1)
  1. AVASTIN [Suspect]
     Active Substance: BEVACIZUMAB
     Indication: OVARIAN CANCER
     Route: 065
     Dates: start: 20171130

REACTIONS (4)
  - Infectious colitis [Unknown]
  - Ill-defined disorder [Not Recovered/Not Resolved]
  - Vaginal infection [Unknown]
  - Gastrointestinal pain [Recovering/Resolving]
